FAERS Safety Report 4357503-8 (Version None)
Quarter: 2004Q2

REPORT INFORMATION
  Report Type: 
  Country: None (occurrence: None)
  Receive Date: 20040506
  Receipt Date: 20040429
  Transmission Date: 20050107
  Serious: Yes (Death)
  Sender: FDA-Public Use
  Company Number: 2004211200US

PATIENT
  Age: 42 Year
  Sex: Male

DRUGS (5)
  1. XANAX [Suspect]
  2. COCAINE (COCAINE) [Suspect]
  3. DIAZEPAM [Suspect]
  4. METHADONE HCL [Suspect]
  5. ETHANOL (ETHANOL) [Suspect]

REACTIONS (1)
  - DRUG TOXICITY [None]
